FAERS Safety Report 12628461 (Version 1)
Quarter: 2016Q3

REPORT INFORMATION
  Report Type: Spontaneous
  Country: US (occurrence: US)
  Receive Date: 20160808
  Receipt Date: 20160808
  Transmission Date: 20161109
  Serious: No
  Sender: FDA-Public Use
  Company Number: US-JAZZ-2016-US-004029

PATIENT
  Sex: Female

DRUGS (20)
  1. FLUTICASONE PROPRIONATE [Concomitant]
     Active Substance: FLUTICASONE PROPIONATE
  2. ALLERGY SHOTS [Concomitant]
     Active Substance: UNSPECIFIED INGREDIENT
  3. ALBUTEROL. [Concomitant]
     Active Substance: ALBUTEROL
  4. ALKA-SELTZER PLUS NIGHT-TIME (ASPIRIN\DIPHENHYDRAMINE\PHENYLPROPANOLAMINE) [Concomitant]
     Active Substance: ASPIRIN\DIPHENHYDRAMINE\PHENYLPROPANOLAMINE
  5. ALLEGRA ALLERGY [Concomitant]
     Active Substance: FEXOFENADINE HYDROCHLORIDE
  6. PEPTO-BISMOL [Concomitant]
     Active Substance: BISMUTH SUBSALICYLATE
  7. MONTELUKAST [Concomitant]
     Active Substance: MONTELUKAST SODIUM
  8. XYREM [Suspect]
     Active Substance: SODIUM OXYBATE
     Dosage: 3.75 G, BID
     Route: 048
     Dates: start: 201512
  9. ASTELIN [Concomitant]
     Active Substance: AZELASTINE HYDROCHLORIDE
  10. METHYLPHENIDATE. [Concomitant]
     Active Substance: METHYLPHENIDATE
  11. MODAFINIL. [Concomitant]
     Active Substance: MODAFINIL
  12. NUVIGIL [Concomitant]
     Active Substance: ARMODAFINIL
  13. XOPENEX HFA [Concomitant]
     Active Substance: LEVALBUTEROL TARTRATE
  14. XYREM [Suspect]
     Active Substance: SODIUM OXYBATE
     Indication: HYPERSOMNIA
     Dosage: 3 G, BID
     Route: 048
     Dates: start: 201511, end: 201512
  15. OMEPRAZOLE. [Concomitant]
     Active Substance: OMEPRAZOLE
  16. CONTRAVE [Concomitant]
     Active Substance: BUPROPION HYDROCHLORIDE\NALTREXONE HYDROCHLORIDE
  17. LEVALBUTEROL. [Concomitant]
     Active Substance: LEVALBUTEROL
  18. SYMBICORT [Concomitant]
     Active Substance: BUDESONIDE\FORMOTEROL FUMARATE DIHYDRATE
  19. TYLENOL COLD MULTI SYMPTOM DAYTIME [Concomitant]
  20. ACCOLATE [Concomitant]
     Active Substance: ZAFIRLUKAST

REACTIONS (4)
  - Suffocation feeling [Unknown]
  - Snoring [Unknown]
  - Headache [Unknown]
  - Abdominal distension [Recovering/Resolving]
